FAERS Safety Report 10683391 (Version 2)
Quarter: 2015Q2

REPORT INFORMATION
  Report Type: Spontaneous
  Country: US (occurrence: US)
  Receive Date: 20141230
  Receipt Date: 20150507
  Transmission Date: 20150821
  Serious: No
  Sender: FDA-Public Use
  Company Number: US-PFIZER INC-2014356985

PATIENT
  Age: 65 Year
  Sex: Male
  Weight: 92 kg

DRUGS (9)
  1. CARDURA [Suspect]
     Active Substance: DOXAZOSIN MESYLATE
     Indication: BENIGN PROSTATIC HYPERPLASIA
     Dosage: 2 MG DAILY AT BEDTIME
     Route: 048
     Dates: start: 1999
  2. AZELASTINE HYDROCHLORIDE. [Concomitant]
     Active Substance: AZELASTINE HYDROCHLORIDE
     Dosage: 1 DF, 2X/DAY
     Route: 045
  3. FLUTICASONE PROPIONATE. [Concomitant]
     Active Substance: FLUTICASONE PROPIONATE
     Dosage: 1 DF, 1X/DAY
  4. DOXYCYCLINE HYCLATE. [Concomitant]
     Active Substance: DOXYCYCLINE HYCLATE
     Dosage: 100 MG, 2X/DAY
     Dates: start: 20140107
  5. DOXAZOSIN MESILATE [Suspect]
     Active Substance: DOXAZOSIN MESYLATE
     Indication: BENIGN PROSTATIC HYPERPLASIA
     Dosage: UNK
  6. DOXYCYCLINE MONOHYDRATE [Concomitant]
     Active Substance: DOXYCYCLINE
     Dosage: 100 MG, 2X/DAY
     Dates: start: 20140209
  7. CIPRO [Suspect]
     Active Substance: CIPROFLOXACIN HYDROCHLORIDE
     Indication: PROSTATITIS
     Dosage: 500 MG, 2X/DAY
     Dates: start: 20141211, end: 201412
  8. SULFAMETHOXAZOLE/TRIMETHOPRIM [Suspect]
     Active Substance: SULFAMETHOXAZOLE\TRIMETHOPRIM
     Indication: PROSTATITIS
     Dosage: 1 DF, 2X/DAY
     Route: 048
     Dates: start: 20141222
  9. CARDURA [Suspect]
     Active Substance: DOXAZOSIN MESYLATE
     Dosage: 8 MG, DAILY AT BEDTIME
     Route: 048

REACTIONS (2)
  - Prostatitis [Recovered/Resolved]
  - Condition aggravated [Recovered/Resolved]

NARRATIVE: CASE EVENT DATE: 201412
